FAERS Safety Report 8290907-X (Version None)
Quarter: 2012Q2

REPORT INFORMATION
  Report Type: 
  Country: None (occurrence: None)
  Receive Date: 20120417
  Receipt Date: 20110506
  Transmission Date: 20120825
  Serious: No
  Sender: FDA-Public Use
  Company Number: US-ASTRAZENECA-2011SE27072

PATIENT
  Age: 57 Year
  Sex: Female

DRUGS (3)
  1. NEXIUM [Suspect]
     Route: 048
  2. NEXIUM [Suspect]
     Route: 048
  3. OTHER PPIS IN PLACE OF NEXIUM [Suspect]

REACTIONS (3)
  - BACK PAIN [None]
  - DRUG DOSE OMISSION [None]
  - CHEST PAIN [None]
